FAERS Safety Report 18797494 (Version 1)
Quarter: 2021Q1

REPORT INFORMATION
  Report Type: Other
  Country: JP (occurrence: JP)
  Receive Date: 20210128
  Receipt Date: 20210128
  Transmission Date: 20210419
  Serious: Yes (Death)
  Sender: FDA-Public Use
  Company Number: JP-SQUARE-000012

PATIENT
  Age: 67 Year
  Sex: Male

DRUGS (7)
  1. PREDNISONE. [Concomitant]
     Active Substance: PREDNISONE
     Indication: ADULT T-CELL LYMPHOMA/LEUKAEMIA
  2. VINDESINE [Concomitant]
     Active Substance: VINDESINE
     Indication: ADULT T-CELL LYMPHOMA/LEUKAEMIA
  3. IRINOTECAN [Concomitant]
     Active Substance: IRINOTECAN
     Indication: ADULT T-CELL LYMPHOMA/LEUKAEMIA
  4. ACICLOVIR [Suspect]
     Active Substance: ACYCLOVIR
     Indication: VARICELLA ZOSTER VIRUS INFECTION
     Dosage: LOW?DOSE ACYCLOVIR (200 MG/DAY)
  5. VALACYCLOVIR [Concomitant]
     Active Substance: VALACYCLOVIR HYDROCHLORIDE
     Indication: HERPES ZOSTER
     Dosage: 3000 MG/DAY FOR 14 DAYS
  6. ETOPOSIDE. [Concomitant]
     Active Substance: ETOPOSIDE
     Indication: ADULT T-CELL LYMPHOMA/LEUKAEMIA
  7. CARBOPLATIN. [Concomitant]
     Active Substance: CARBOPLATIN
     Indication: ADULT T-CELL LYMPHOMA/LEUKAEMIA

REACTIONS (4)
  - Prescribed underdose [Unknown]
  - Herpes zoster reactivation [Recovered/Resolved]
  - Drug resistance [Unknown]
  - Adverse event [Fatal]
